FAERS Safety Report 6781224-5 (Version None)
Quarter: 2010Q2

REPORT INFORMATION
  Report Type: 
  Country: None (occurrence: None)
  Receive Date: 20100621
  Receipt Date: 20100615
  Transmission Date: 20101027
  Serious: Yes (Hospitalization)
  Sender: FDA-Public Use
  Company Number: IT-BAYER-201029006GPV

PATIENT
  Age: 31 Year
  Sex: Male

DRUGS (1)
  1. ASPIRIN [Suspect]
     Indication: POLYCYTHAEMIA
     Dosage: TOTAL DAILY DOSE: 100 MG  UNIT DOSE: 100 MG
     Route: 048
     Dates: start: 20100525, end: 20100610

REACTIONS (3)
  - ANAEMIA [None]
  - DIEULAFOY'S VASCULAR MALFORMATION [None]
  - HAEMORRHAGE [None]
